FAERS Safety Report 9372173 (Version 1)
Quarter: 2013Q2

REPORT INFORMATION
  Report Type: Spontaneous
  Country: US (occurrence: None)
  Receive Date: 20130625
  Receipt Date: 20130625
  Transmission Date: 20140414
  Serious: Yes (Hospitalization)
  Sender: FDA-Public Use
  Company Number: 2013GMK006018

PATIENT
  Age: 15 Year
  Sex: Female

DRUGS (2)
  1. METFORMIN [Suspect]
     Indication: PRODUCT USED FOR UNKNOWN INDICATION
     Route: 048
  2. QUETIAPINE (QUETIAPINE) (QUETIAPINE) [Concomitant]

REACTIONS (6)
  - Overdose [None]
  - Hypoglycaemia [None]
  - Lactic acidosis [None]
  - Somnolence [None]
  - Hypotension [None]
  - Haemodialysis [None]
